FAERS Safety Report 7378066-9 (Version None)
Quarter: 2011Q1

REPORT INFORMATION
  Report Type: 
  Country: None (occurrence: None)
  Receive Date: 20110328
  Receipt Date: 20110321
  Transmission Date: 20110831
  Serious: No
  Sender: FDA-Public Use
  Company Number: US-PFIZER INC-2011041671

PATIENT
  Age: 78 Year
  Sex: Male
  Weight: 102.04 kg

DRUGS (7)
  1. TAMSULOSIN [Concomitant]
     Dosage: UNK
  2. ACETYLSALICYLIC ACID [Concomitant]
     Dosage: UNK
  3. METFORMIN [Concomitant]
     Dosage: UNK
  4. CELEBREX [Suspect]
     Dosage: UNK
  5. CARVEDILOL [Concomitant]
     Dosage: UNK
  6. BYETTA [Concomitant]
     Dosage: UNK
  7. LIPITOR [Concomitant]
     Dosage: UNK

REACTIONS (1)
  - GOUT [None]
